FAERS Safety Report 6362731-6 (Version None)
Quarter: 2009Q3

REPORT INFORMATION
  Report Type: 
  Country: None (occurrence: None)
  Receive Date: 20090919
  Receipt Date: 20090608
  Transmission Date: 20100115
  Serious: No
  Sender: FDA-Public Use
  Company Number: US-ABBOTT-09P-163-0578724-00

PATIENT
  Sex: Female
  Weight: 133.93 kg

DRUGS (4)
  1. HUMIRA [Suspect]
     Indication: PSORIASIS
     Route: 058
     Dates: start: 20090101, end: 20090401
  2. HUMIRA [Suspect]
     Route: 058
     Dates: start: 20090101, end: 20090101
  3. HUMIRA [Suspect]
     Route: 058
     Dates: start: 20090401, end: 20090401
  4. HUMIRA [Suspect]
     Route: 058
     Dates: start: 20090401

REACTIONS (2)
  - GAIT DISTURBANCE [None]
  - PSORIASIS [None]
